FAERS Safety Report 6730971-X (Version None)
Quarter: 2010Q2

REPORT INFORMATION
  Report Type: 
  Country: None (occurrence: None)
  Receive Date: 20100518
  Receipt Date: 20100505
  Transmission Date: 20101027
  Serious: Yes (Hospitalization)
  Sender: FDA-Public Use
  Company Number: US-JNJFOC-20100505042

PATIENT
  Age: 18 Month
  Sex: Male

DRUGS (3)
  1. CONCENTRATED MOTRIN INFANTS DROPS [Suspect]
     Route: 065
  2. CONCENTRATED MOTRIN INFANTS DROPS [Suspect]
     Indication: PYREXIA
     Route: 065
  3. BENADRYL [Suspect]
     Indication: HYPERSENSITIVITY
     Dosage: FOR 2-3 DAYS
     Route: 048

REACTIONS (2)
  - PNEUMONIA [None]
  - PRODUCT QUALITY ISSUE [None]
